FAERS Safety Report 9780588 (Version 1)
Quarter: 2013Q4

REPORT INFORMATION
  Report Type: Spontaneous
  Country: US (occurrence: US)
  Receive Date: 20131224
  Receipt Date: 20131224
  Transmission Date: 20140711
  Serious: Yes (Other)
  Sender: FDA-Public Use
  Company Number: US-RB-061385-13

PATIENT
  Age: 83 Year
  Sex: Male

DRUGS (1)
  1. MUCINEX MAXIMUM STRENGTH [Suspect]
     Indication: PRODUCT USED FOR UNKNOWN INDICATION
     Dosage: TOOK 2 TABLETS IN TOTAL, 1 TABLET ON 19/DEC/2013 AND 2ND ON 20/DEC/2013
     Route: 048
     Dates: start: 20131219

REACTIONS (4)
  - Hallucination [Recovered/Resolved]
  - Delirium [Recovered/Resolved]
  - Thinking abnormal [Recovered/Resolved]
  - Insomnia [Recovered/Resolved]
